FAERS Safety Report 8903391 (Version 1)
Quarter: 2012Q4

REPORT INFORMATION
  Report Type: Report from Study
  Country: GB (occurrence: GB)
  Receive Date: 20121111
  Receipt Date: 20121111
  Transmission Date: 20130627
  Serious: Yes (Hospitalization)
  Sender: FDA-Public Use
  Company Number: GB-BRISTOL-MYERS SQUIBB COMPANY-17094368

PATIENT
  Age: 46 Year
  Sex: Female

DRUGS (4)
  1. IPILIMUMAB [Suspect]
     Indication: METASTATIC MALIGNANT MELANOMA
     Route: 042
     Dates: start: 20120911
  2. PARACETAMOL [Concomitant]
     Dates: start: 2012
  3. FLUOXETINE [Concomitant]
     Dates: start: 2012
  4. ZOPICLONE [Concomitant]
     Dates: start: 2012

REACTIONS (2)
  - Arthralgia [Recovered/Resolved with Sequelae]
  - Pyrexia [Recovered/Resolved]
